FAERS Safety Report 6137026-6 (Version None)
Quarter: 2009Q1

REPORT INFORMATION
  Report Type: 
  Country: None (occurrence: None)
  Receive Date: 20090330
  Receipt Date: 20090320
  Transmission Date: 20090719
  Serious: Yes (Hospitalization, Other)
  Sender: FDA-Public Use
  Company Number: US-ELI_LILLY_AND_COMPANY-US200903005927

PATIENT
  Sex: Female

DRUGS (3)
  1. FORTEO [Suspect]
     Indication: OSTEOPOROSIS
     Dosage: UNK, UNK
     Dates: start: 20080101, end: 20081026
  2. FORTEO [Suspect]
     Dates: start: 20090320
  3. ANALGESICS [Concomitant]
     Indication: PAIN

REACTIONS (6)
  - ARTHRITIS [None]
  - DEVICE BREAKAGE [None]
  - FALL [None]
  - FOOT FRACTURE [None]
  - LIMB DISCOMFORT [None]
  - PAIN IN EXTREMITY [None]
